FAERS Safety Report 15126692 (Version 3)
Quarter: 2018Q3

REPORT INFORMATION
  Report Type: Report from Study
  Country: DE (occurrence: DE)
  Receive Date: 20180710
  Receipt Date: 20180727
  Transmission Date: 20181010
  Serious: Yes (Death)
  Sender: FDA-Public Use
  Company Number: DE-PFIZER INC-2018273591

PATIENT
  Age: 74 Year
  Sex: Female
  Weight: 88 kg

DRUGS (13)
  1. MCP BETA [Concomitant]
     Indication: VOMITING
  2. PALBOCICLIB [Suspect]
     Active Substance: PALBOCICLIB
     Indication: BREAST CANCER METASTATIC
     Dosage: 125 MG, DAILY
     Route: 048
     Dates: start: 20171103, end: 20180625
  3. XGEVA [Concomitant]
     Active Substance: DENOSUMAB
     Indication: METASTASES TO BONE
     Dosage: UNK
     Route: 058
     Dates: start: 20170119
  4. RAMIPRIL BETA COMP [Concomitant]
     Indication: HYPERTENSION
     Dosage: 2, 5 MG/12, 5 MG/?5 MG/25 MG
     Route: 048
     Dates: start: 20161107
  5. FULVESTRANT. [Suspect]
     Active Substance: FULVESTRANT
     Indication: BREAST CANCER METASTATIC
     Dosage: 500 MG, CYCLIC (ONCE MONTHLY EXCEPT CYCLE 1: DAY 1, 15, 29)
     Route: 030
     Dates: start: 20171103, end: 20180614
  6. MCP BETA [Concomitant]
     Indication: NAUSEA
     Dosage: UNK
     Route: 048
     Dates: start: 20180614
  7. VIGANTOL OIL [Concomitant]
     Indication: PROPHYLAXIS
     Dosage: UNK
     Route: 048
     Dates: start: 20161107
  8. L THYROXIN HENNING [Concomitant]
     Active Substance: LEVOTHYROXINE SODIUM
     Indication: THYROID FUNCTION TEST ABNORMAL
     Dosage: UNK
     Route: 048
     Dates: start: 20180418
  9. PANTOPRAZOL HENNIG [Concomitant]
     Indication: VOMITING
  10. TIM?OPHTAL [Concomitant]
     Active Substance: TIMOLOL MALEATE
     Indication: CATARACT
     Dosage: UNK
     Route: 061
     Dates: start: 20161107
  11. MCP BETA [Concomitant]
     Indication: DIARRHOEA
  12. PANTOPRAZOL HENNIG [Concomitant]
     Indication: NAUSEA
     Dosage: UNK
     Route: 048
     Dates: start: 20180614
  13. PANTOPRAZOL HENNIG [Concomitant]
     Indication: DIARRHOEA

REACTIONS (1)
  - Neoplasm progression [Fatal]

NARRATIVE: CASE EVENT DATE: 20180621
